FAERS Safety Report 22210355 (Version 1)
Quarter: 2023Q2

REPORT INFORMATION
  Report Type: Spontaneous
  Country: US (occurrence: US)
  Receive Date: 20230414
  Receipt Date: 20230414
  Transmission Date: 20230721
  Serious: No
  Sender: FDA-Public Use
  Company Number: US-CADILA HEALTHCARE LIMITED-US-ZYDUS-089837

PATIENT

DRUGS (1)
  1. LENALIDOMIDE [Suspect]
     Active Substance: LENALIDOMIDE
     Indication: Plasma cell myeloma in remission
     Dosage: 5 MILLIGRAM, QD
     Route: 048

REACTIONS (5)
  - Nausea [Unknown]
  - Tremor [Unknown]
  - Insomnia [Unknown]
  - Malaise [Unknown]
  - Product substitution issue [Unknown]
